FAERS Safety Report 4271991-7 (Version None)
Quarter: 2004Q1

REPORT INFORMATION
  Report Type: 
  Country: None (occurrence: None)
  Receive Date: 20040115
  Receipt Date: 20020429
  Transmission Date: 20041129
  Serious: Yes (Hospitalization)
  Sender: FDA-Public Use
  Company Number: US-BRISTOL-MYERS SQUIBB COMPANY-11838240

PATIENT
  Age: 66 Year
  Sex: Male
  Weight: 63 kg

DRUGS (5)
  1. ATORVASTATIN [Suspect]
     Dosage: MOST RECENT DOSE PRIOR TO EVENT 22-APR-2002
     Route: 048
     Dates: start: 20011120
  2. PLACEBO [Suspect]
     Dosage: MOST RECENT DOSE PRIOR TO EVENT 22-APR-2002
     Dates: start: 20011206
  3. METOPROLOL TARTRATE [Suspect]
     Dosage: DOSE WAS REDUCED DUE TO SYNCOPAL EPISODE TO 6.25MG TWICE A DAY.
     Dates: start: 20011116
  4. ASPIRIN [Concomitant]
     Dates: start: 20011116
  5. ALTACE [Concomitant]
     Dates: start: 20011116

REACTIONS (5)
  - HYPOTENSION [None]
  - HYPOXIA [None]
  - MYOCARDIAL INFARCTION [None]
  - POST-TRAUMATIC EPILEPSY [None]
  - SYNCOPE [None]
